FAERS Safety Report 10094554 (Version 2)
Quarter: 2014Q2

REPORT INFORMATION
  Report Type: Spontaneous
  Country: US (occurrence: US)
  Receive Date: 20140422
  Receipt Date: 20140422
  Transmission Date: 20141212
  Serious: No
  Sender: FDA-Public Use
  Company Number: US-SANOFI-AVENTIS-2013SA012190

PATIENT
  Age: 61 Year
  Sex: Female

DRUGS (7)
  1. ALLEGRA D [Suspect]
     Indication: SINUS CONGESTION
     Route: 048
     Dates: start: 20130207
  2. ACTIVELLA [Concomitant]
  3. LEVOTHYROXINE [Concomitant]
     Indication: HYPOTHYROIDISM
     Dates: start: 2007
  4. MULTIVITAMINS [Concomitant]
  5. CALCIUM [Concomitant]
  6. BALM/MAGNESIUM/OMEGA 3 FATTY ACIDS/SELENIUM/VITAMIN B6/ VITAMIN E/ZINC [Concomitant]
  7. VITAMIN E [Concomitant]

REACTIONS (5)
  - Blood pressure increased [Recovered/Resolved]
  - Nausea [Recovered/Resolved]
  - Dizziness [Recovered/Resolved]
  - Dizziness [Recovered/Resolved]
  - Insomnia [Recovered/Resolved]
